FAERS Safety Report 21211691 (Version 3)
Quarter: 2023Q1

REPORT INFORMATION
  Report Type: Report from Study
  Country: US (occurrence: US)
  Receive Date: 20220815
  Receipt Date: 20230206
  Transmission Date: 20230417
  Serious: Yes (Hospitalization)
  Sender: FDA-Public Use
  Company Number: US-XERIS PHARMACEUTICALS-2022XER00278

PATIENT
  Age: 40 Year
  Sex: Female

DRUGS (2)
  1. KEVEYIS [Suspect]
     Active Substance: DICHLORPHENAMIDE
     Indication: Paralysis
     Dosage: 1.5 TABLETS (75 MG), 2X/DAY
     Route: 048
     Dates: start: 20211012
  2. KEVEYIS [Suspect]
     Active Substance: DICHLORPHENAMIDE
     Dosage: 1 TABLET (50 MG), 3X/DAY
     Route: 048

REACTIONS (16)
  - Asthenia [Recovering/Resolving]
  - Hypotension [Recovering/Resolving]
  - Blood chloride decreased [Recovering/Resolving]
  - Renal impairment [Recovering/Resolving]
  - Hospitalisation [Not Recovered/Not Resolved]
  - Nephrolithiasis [Recovering/Resolving]
  - Fatigue [Recovering/Resolving]
  - Headache [Recovering/Resolving]
  - Nausea [Recovering/Resolving]
  - Fall [Recovering/Resolving]
  - Muscle spasms [Unknown]
  - Malaise [Recovering/Resolving]
  - Paralysis [Unknown]
  - Back pain [Unknown]
  - Renal pain [Unknown]
  - Muscle contracture [Unknown]

NARRATIVE: CASE EVENT DATE: 20220701
